FAERS Safety Report 6771556-9 (Version None)
Quarter: 2010Q2

REPORT INFORMATION
  Report Type: 
  Country: None (occurrence: None)
  Receive Date: 20100616
  Receipt Date: 20100604
  Transmission Date: 20101027
  Serious: Yes (Hospitalization)
  Sender: FDA-Public Use
  Company Number: ES-SANOFI-AVENTIS-2010SA012843

PATIENT
  Age: 62 Year
  Sex: Female
  Weight: 97 kg

DRUGS (5)
  1. OXALIPLATIN [Suspect]
     Indication: COLON CANCER
     Route: 041
     Dates: start: 20100119, end: 20100119
  2. OXALIPLATIN [Suspect]
     Route: 041
     Dates: start: 20100302, end: 20100302
  3. CAPECITABINE [Concomitant]
     Indication: COLON CANCER
     Route: 048
  4. DEXAMETHASONE [Concomitant]
     Route: 042
  5. GRANISETRON [Concomitant]
     Route: 042

REACTIONS (3)
  - BALANCE DISORDER [None]
  - DYSARTHRIA [None]
  - HYPERTENSION [None]
